FAERS Safety Report 4538805-9 (Version None)
Quarter: 2004Q4

REPORT INFORMATION
  Report Type: 
  Country: None (occurrence: None)
  Receive Date: 20041223
  Receipt Date: 20040917
  Transmission Date: 20050328
  Serious: No
  Sender: FDA-Public Use
  Company Number: US-JNJFOC-20040906675

PATIENT
  Age: 23 Year
  Sex: Female
  Weight: 98.8842 kg

DRUGS (3)
  1. ORTHO EVRA [Suspect]
     Indication: CONTRACEPTION
     Dosage: 1 DOSE(S), 3 IN 4 WEEK ,TRANSDERMAL
     Route: 062
     Dates: start: 20040815
  2. PROTOXIN (PANTOPRAZOLE) [Concomitant]
  3. ZYRTEC [Concomitant]

REACTIONS (2)
  - APPLICATION SITE REACTION [None]
  - SKIN HYPOPIGMENTATION [None]
